FAERS Safety Report 6339604-8 (Version None)
Quarter: 2009Q3

REPORT INFORMATION
  Report Type: 
  Country: None (occurrence: None)
  Receive Date: 20090903
  Receipt Date: 20090610
  Transmission Date: 20100115
  Serious: Yes (Death)
  Sender: FDA-Public Use
  Company Number: US-BRACCO-002992

PATIENT
  Age: 83 Year
  Sex: Female

DRUGS (2)
  1. ISOVUE-128 [Suspect]
     Indication: PAIN
     Route: 042
     Dates: start: 20090522, end: 20090522
  2. ISOVUE-128 [Suspect]
     Indication: COMPUTERISED TOMOGRAM
     Route: 042
     Dates: start: 20090522, end: 20090522

REACTIONS (1)
  - ANAPHYLACTIC REACTION [None]
